FAERS Safety Report 7831990-2 (Version None)
Quarter: 2011Q4

REPORT INFORMATION
  Report Type: 
  Country: None (occurrence: None)
  Receive Date: 20111021
  Receipt Date: 20111010
  Transmission Date: 20120403
  Serious: Yes (Hospitalization, Other)
  Sender: FDA-Public Use
  Company Number: NL-ELI_LILLY_AND_COMPANY-NL201108001739

PATIENT
  Sex: Female
  Weight: 100 kg

DRUGS (11)
  1. MORFINE [Concomitant]
     Indication: BONE PAIN
     Dosage: 1 DF, QOD
     Dates: start: 20110701
  2. DIGOXIN [Concomitant]
     Indication: URINARY TRACT INFECTION
     Dosage: 100 MG, QD
     Route: 048
  3. SPIRIVA [Concomitant]
     Indication: CHRONIC OBSTRUCTIVE PULMONARY DISEASE
     Dosage: 1 DF, BID
  4. FORTEO [Suspect]
     Indication: OSTEOPOROSIS
     Dosage: 20 UG, QD
     Route: 058
     Dates: start: 20110727
  5. OXYGEN [Concomitant]
     Indication: DYSPNOEA
     Dosage: UNK
     Dates: start: 20080101
  6. ASCAL [Concomitant]
     Indication: BLOOD DISORDER
     Dosage: 100 MG, QD
     Route: 048
  7. FORADIL [Concomitant]
     Indication: CHRONIC OBSTRUCTIVE PULMONARY DISEASE
     Dosage: UNK, PRN
     Route: 055
  8. FUROSEMIDE [Concomitant]
     Indication: FLUID RETENTION
     Dosage: 40 MG, QD
     Route: 048
  9. PULMICORT [Concomitant]
     Indication: CHRONIC OBSTRUCTIVE PULMONARY DISEASE
     Dosage: 2 DF, BID
     Route: 055
  10. PREDNISOLONE [Concomitant]
     Indication: CHRONIC OBSTRUCTIVE PULMONARY DISEASE
     Dosage: 5 MG, BID
     Route: 048
  11. NEXIUM [Concomitant]
     Indication: GASTRITIS PROPHYLAXIS
     Dosage: 40 MG, BID
     Route: 048

REACTIONS (5)
  - PNEUMONITIS [None]
  - CHRONIC OBSTRUCTIVE PULMONARY DISEASE [None]
  - DYSPNOEA [None]
  - NAUSEA [None]
  - EMPHYSEMA [None]
